FAERS Safety Report 7295106-6 (Version None)
Quarter: 2011Q1

REPORT INFORMATION
  Report Type: 
  Country: None (occurrence: None)
  Receive Date: 20110211
  Receipt Date: 20110211
  Transmission Date: 20110831
  Serious: No
  Sender: FDA-Public Use
  Company Number: None

PATIENT
  Sex: Male

DRUGS (1)
  1. ROPINIROLE [Suspect]
     Indication: RESTLESS LEGS SYNDROME
     Dosage: 0.25MG PO QDAY
     Route: 048
     Dates: start: 20080101

REACTIONS (2)
  - NAUSEA [None]
  - VOMITING [None]
